FAERS Safety Report 4424357-0 (Version None)
Quarter: 2004Q3

REPORT INFORMATION
  Report Type: 
  Country: None (occurrence: None)
  Receive Date: 20040810
  Receipt Date: 20040810
  Transmission Date: 20050211
  Serious: Yes (Other)
  Sender: FDA-Public Use
  Company Number: None

PATIENT
  Age: 76 Year
  Sex: Male
  Weight: 59.8748 kg

DRUGS (18)
  1. GLEEVEC [Suspect]
     Indication: HYPEREOSINOPHILIC SYNDROME
     Dosage: 200 MG DAILY ORAL
     Route: 048
     Dates: start: 20030811, end: 20040809
  2. ALBUTEROL SULFATE AND IPRATROPIUM BROMIDE [Concomitant]
  3. CALCIUM CARBONATE [Concomitant]
  4. CLONAZEPAM [Concomitant]
  5. FLUNISOLIDIE [Concomitant]
  6. FLUTICASONE PROP [Concomitant]
  7. HYDROCODONE 5/ ACETAMINOPHEN [Concomitant]
  8. IMATINIB MESYLATE [Concomitant]
  9. IIPRATROPIUM BROMIDE [Concomitant]
  10. SYNTHROID [Concomitant]
  11. LOPERAMIDE HCL [Concomitant]
  12. OMEPRAZOLE [Concomitant]
  13. OXYCODONE AND ACETAMINOPHEN [Concomitant]
  14. PREDNISONE [Concomitant]
  15. RANITIDINE HCL [Concomitant]
  16. SELENIUM SULFIDE [Concomitant]
  17. LOTION/SHAMPOO [Concomitant]
  18. THEOPHYLLINE [Concomitant]

REACTIONS (2)
  - CHROMATOPSIA [None]
  - VISUAL DISTURBANCE [None]
